FAERS Safety Report 9314359 (Version 2)
Quarter: 2013Q2

REPORT INFORMATION
  Report Type: Spontaneous
  Country: US (occurrence: US)
  Receive Date: 20130529
  Receipt Date: 20130607
  Transmission Date: 20140414
  Serious: Yes (Hospitalization)
  Sender: FDA-Public Use
  Company Number: US-BAYER-2013-064502

PATIENT
  Age: 52 Year
  Sex: Female
  Weight: 72.56 kg

DRUGS (1)
  1. ALEVE CAPLET [Suspect]
     Indication: PAIN PROPHYLAXIS
     Dosage: 1 DF, PRN
     Route: 048
     Dates: start: 20130518, end: 20130518

REACTIONS (4)
  - Blood pressure decreased [Recovered/Resolved]
  - Dizziness [Recovered/Resolved]
  - Loss of consciousness [Recovered/Resolved]
  - Off label use [None]
